FAERS Safety Report 7265758-5 (Version None)
Quarter: 2011Q1

REPORT INFORMATION
  Report Type: 
  Country: None (occurrence: None)
  Receive Date: 20110131
  Receipt Date: 20110119
  Transmission Date: 20110831
  Serious: Yes (Hospitalization)
  Sender: FDA-Public Use
  Company Number: JP-ELI_LILLY_AND_COMPANY-JP201101004285

PATIENT
  Sex: Male
  Weight: 51.8 kg

DRUGS (8)
  1. TENORMIN [Concomitant]
     Indication: HYPERTENSION
     Dosage: 25 MG, EACH MORNING
     Route: 048
  2. GEMCITABINE HYDROCHLORIDE [Suspect]
     Indication: GALLBLADDER CANCER
     Dosage: 1456 MG, DAY 1, 8, 15 EVERY 28 DAYS
     Route: 042
     Dates: start: 20100922
  3. AMLODIPIN /00972402/ [Concomitant]
     Indication: HYPERTENSION
     Dosage: 5 MG, EACH MORNING
     Route: 048
  4. MAGLAX [Concomitant]
     Indication: CONSTIPATION
     Dosage: 250 MG, AS NEEDED
     Route: 048
  5. OTS102 [Suspect]
     Indication: GALLBLADDER CANCER
     Dosage: 2 MG, WEEKLY (1/W)
     Route: 058
     Dates: start: 20100922, end: 20110105
  6. SEROTONE [Concomitant]
     Indication: NAUSEA
     Dosage: 10MG, CONCURRENTLY WITH GEMCITABINE
     Route: 042
     Dates: start: 20100922
  7. DIOVAN [Concomitant]
     Indication: HYPERTENSION
     Dosage: 40 MG, EACH MORNING
     Route: 048
  8. URSO 250 [Concomitant]
     Indication: PROPHYLAXIS
     Dosage: 100 MG, 3/D
     Route: 048

REACTIONS (2)
  - JAUNDICE CHOLESTATIC [None]
  - CHOLANGITIS [None]
